FAERS Safety Report 12843034 (Version 2)
Quarter: 2016Q4

REPORT INFORMATION
  Report Type: Spontaneous
  Country: JP (occurrence: JP)
  Receive Date: 20161013
  Receipt Date: 20161018
  Transmission Date: 20170207
  Serious: Yes (Hospitalization)
  Sender: FDA-Public Use
  Company Number: PHJP2016JP025548

PATIENT
  Age: 36 Year
  Sex: Male

DRUGS (2)
  1. GILENYA [Suspect]
     Active Substance: FINGOLIMOD HYDROCHLORIDE
     Dosage: 0.5 MG, QOD
     Route: 048
     Dates: end: 20161006
  2. GILENYA [Suspect]
     Active Substance: FINGOLIMOD HYDROCHLORIDE
     Indication: MULTIPLE SCLEROSIS
     Dosage: 0.5 MG, QD
     Route: 048
     Dates: start: 20160714

REACTIONS (7)
  - Drug effect incomplete [Unknown]
  - Prescribed underdose [Unknown]
  - Multiple sclerosis relapse [Unknown]
  - Brain stem syndrome [Recovering/Resolving]
  - Lymphocyte count decreased [Recovering/Resolving]
  - Malaise [Recovering/Resolving]
  - Disorder of globe [Recovering/Resolving]

NARRATIVE: CASE EVENT DATE: 201608
